FAERS Safety Report 5443025-X (Version None)
Quarter: 2007Q3

REPORT INFORMATION
  Report Type: 
  Country: None (occurrence: None)
  Receive Date: 20070905
  Receipt Date: 20070831
  Transmission Date: 20080115
  Serious: Yes (Death)
  Sender: FDA-Public Use
  Company Number: DE-BRISTOL-MYERS SQUIBB COMPANY-13891676

PATIENT
  Age: 75 Year
  Sex: Male

DRUGS (13)
  1. CETUXIMAB [Suspect]
     Indication: NON-SMALL CELL LUNG CANCER
     Dosage: CETUXIMAB 2 MG/ML
     Route: 042
     Dates: start: 20070209, end: 20070621
  2. CARBOPLATIN [Suspect]
     Indication: NON-SMALL CELL LUNG CANCER
     Dosage: AUC5
     Route: 042
     Dates: start: 20070209, end: 20070414
  3. GEMCITABINE HCL [Suspect]
     Indication: NON-SMALL CELL LUNG CANCER
     Route: 042
     Dates: start: 20070209, end: 20070423
  4. PARACETAMOL [Concomitant]
     Dates: start: 20070802
  5. LOPERAMIDE HCL [Concomitant]
     Dates: start: 20070802
  6. NEXIUM [Concomitant]
     Dates: start: 20070802
  7. TORSEMIDE [Concomitant]
     Dates: start: 20070802
  8. PERENTEROL [Concomitant]
     Dates: start: 20070802
  9. PROTHAZINE [Concomitant]
     Dates: start: 20070802
  10. METRONIDAZOLE [Concomitant]
     Dates: start: 20070802
  11. METOCLOPRAMIDE [Concomitant]
     Dates: start: 20070802
  12. ALDACTONE [Concomitant]
     Dates: start: 20040802
  13. HYLAK [Concomitant]
     Dates: start: 20070802

REACTIONS (2)
  - COMPLETED SUICIDE [None]
  - SKULL FRACTURE [None]
